FAERS Safety Report 11957790 (Version 1)
Quarter: 2016Q1

REPORT INFORMATION
  Report Type: Report from Study
  Country: US (occurrence: US)
  Receive Date: 20160126
  Receipt Date: 20160126
  Transmission Date: 20160526
  Serious: Yes (Other)
  Sender: FDA-Public Use
  Company Number: US-BIOGEN-2012BI063238

PATIENT
  Age: 60 Year
  Sex: Male

DRUGS (7)
  1. TAMSULOSIN [Concomitant]
     Active Substance: TAMSULOSIN
     Indication: PRODUCT USED FOR UNKNOWN INDICATION
     Route: 065
  2. GABAPENTIN. [Concomitant]
     Active Substance: GABAPENTIN
     Indication: PRODUCT USED FOR UNKNOWN INDICATION
     Route: 065
  3. AVONEX [Suspect]
     Active Substance: INTERFERON BETA-1A
     Route: 030
     Dates: start: 1996
  4. AVONEX [Suspect]
     Active Substance: INTERFERON BETA-1A
     Indication: MULTIPLE SCLEROSIS
     Route: 030
     Dates: start: 19990601, end: 2003
  5. AVONEX [Suspect]
     Active Substance: INTERFERON BETA-1A
     Route: 030
     Dates: start: 2012
  6. AVONEX [Suspect]
     Active Substance: INTERFERON BETA-1A
     Route: 030
     Dates: start: 2003, end: 2012
  7. TRAMADOL. [Concomitant]
     Active Substance: TRAMADOL
     Indication: PRODUCT USED FOR UNKNOWN INDICATION
     Route: 065

REACTIONS (19)
  - Platelet count decreased [Recovered/Resolved]
  - Platelet aggregation increased [Not Recovered/Not Resolved]
  - Micturition urgency [Recovered/Resolved]
  - Spinal column stenosis [Not Recovered/Not Resolved]
  - Influenza like illness [Not Recovered/Not Resolved]
  - Hemiparesis [Not Recovered/Not Resolved]
  - Sciatica [Recovered/Resolved]
  - Vertigo [Recovered/Resolved]
  - Platelet morphology abnormal [Not Recovered/Not Resolved]
  - Back pain [Recovered/Resolved]
  - Urine flow decreased [Recovered/Resolved]
  - Prostatomegaly [Recovered/Resolved]
  - Pain in extremity [Recovered/Resolved]
  - Atrophy [Not Recovered/Not Resolved]
  - Erectile dysfunction [Recovered/Resolved]
  - Multiple sclerosis relapse [Recovered/Resolved]
  - Prostate cancer stage II [Recovered/Resolved]
  - Blood cholesterol increased [Not Recovered/Not Resolved]
  - Hot flush [Recovered/Resolved]

NARRATIVE: CASE EVENT DATE: 1996
